FAERS Safety Report 11105804 (Version 10)
Quarter: 2019Q4

REPORT INFORMATION
  Report Type: Report from Study
  Country: BR (occurrence: BR)
  Receive Date: 20150512
  Receipt Date: 20191120
  Transmission Date: 20200122
  Serious: Yes (Hospitalization, Other)
  Sender: FDA-Public Use
  Company Number: BR-ROCHE-1576310

PATIENT
  Age: 47 Year
  Sex: Female
  Weight: 93 kg

DRUGS (17)
  1. SOMALGEN [Concomitant]
  2. DIOVAN [Concomitant]
     Active Substance: VALSARTAN
     Indication: HYPERTENSION
  3. ACTEMRA [Suspect]
     Active Substance: TOCILIZUMAB
     Dosage: TOTAL MONTHLY DOSE 560 MG
     Route: 042
     Dates: start: 201503
  4. NALDECON [CARBINOXAMINE MALEATE;PARACETAMOL;PHENYLEPHRINE HYDROCHLORID [Concomitant]
     Active Substance: ACETAMINOPHEN\CARBINOXAMINE MALEATE\PHENYLEPHRINE HYDROCHLORIDE
  5. METICORTEN [Concomitant]
     Active Substance: PREDNISONE
     Route: 065
  6. PLAVIX [Concomitant]
     Active Substance: CLOPIDOGREL BISULFATE
  7. CILOSTAZOL. [Concomitant]
     Active Substance: CILOSTAZOL
  8. ATENOLOL. [Concomitant]
     Active Substance: ATENOLOL
     Indication: HYPERTENSION
  9. PURAN [Concomitant]
     Active Substance: LEVOTHYROXINE SODIUM
     Indication: THYROID DISORDER
  10. CLOPIDOGREL [Concomitant]
     Active Substance: CLOPIDOGREL BISULFATE
     Indication: TAKAYASU^S ARTERITIS
     Route: 048
  11. ATENSINA [Concomitant]
     Active Substance: CLONIDINE
     Indication: HYPERTENSION
  12. ACTEMRA [Suspect]
     Active Substance: TOCILIZUMAB
     Indication: TAKAYASU^S ARTERITIS
     Dosage: MOST RECENT DOSE WAS ADMINISTERED ON 01/AUG/2017
     Route: 042
     Dates: start: 20131212
  13. ACTEMRA [Suspect]
     Active Substance: TOCILIZUMAB
     Dosage: TOTAL MONTHLY DOSE 560 MG
     Route: 042
     Dates: start: 201502
  14. ACTEMRA [Suspect]
     Active Substance: TOCILIZUMAB
     Dosage: TOTAL MONTHLY DOSE 560 MG
     Route: 042
     Dates: start: 201501
  15. PREDNISONE. [Concomitant]
     Active Substance: PREDNISONE
     Indication: TAKAYASU^S ARTERITIS
     Route: 048
  16. ACTEMRA [Suspect]
     Active Substance: TOCILIZUMAB
     Indication: RHEUMATOID ARTHRITIS
     Dosage: TOTAL MONTHLY DOSE 560 MG
     Route: 042
     Dates: start: 201504
  17. LEFLUNOMIDE. [Concomitant]
     Active Substance: LEFLUNOMIDE
     Route: 048

REACTIONS (13)
  - Poor venous access [Not Recovered/Not Resolved]
  - Nasopharyngitis [Recovered/Resolved]
  - Heart rate abnormal [Unknown]
  - Arthralgia [Recovering/Resolving]
  - Off label use [Unknown]
  - Weight loss poor [Recovering/Resolving]
  - Weight increased [Recovering/Resolving]
  - Sinusitis [Recovered/Resolved]
  - Arthralgia [Recovering/Resolving]
  - Cholelithiasis [Recovering/Resolving]
  - Hypertension [Recovering/Resolving]
  - Gallbladder disorder [Recovering/Resolving]
  - Intentional product use issue [Unknown]

NARRATIVE: CASE EVENT DATE: 201504
